FAERS Safety Report 8780195 (Version 1)
Quarter: 2012Q4

REPORT INFORMATION
  Report Type: Spontaneous
  Country: US (occurrence: None)
  Receive Date: 20120904
  Receipt Date: 20120904
  Transmission Date: 20130627
  Serious: No
  Sender: FDA-Public Use
  Company Number: None

PATIENT
  Age: 11 Year
  Sex: Male
  Weight: 44.45 kg

DRUGS (3)
  1. METHYLPHENIDATE ER [Suspect]
     Dates: start: 20110603
  2. METHYLPHENIDATE ER [Suspect]
     Dates: start: 20110624
  3. METHYLPHENIDATE ER [Suspect]
     Dates: start: 20110726

REACTIONS (1)
  - Treatment failure [None]
